FAERS Safety Report 25540490 (Version 1)
Quarter: 2025Q3

REPORT INFORMATION
  Report Type: Spontaneous
  Country: EU (occurrence: EU)
  Receive Date: 20250710
  Receipt Date: 20250710
  Transmission Date: 20251021
  Serious: Yes (Death)
  Sender: MYLAN
  Company Number: None

PATIENT
  Age: 75 Year
  Sex: Female
  Weight: 61 kg

DRUGS (12)
  1. ACETAMINOPHEN [Suspect]
     Active Substance: ACETAMINOPHEN
     Indication: Back pain
  2. ACETAMINOPHEN [Suspect]
     Active Substance: ACETAMINOPHEN
     Route: 048
  3. ACETAMINOPHEN [Suspect]
     Active Substance: ACETAMINOPHEN
     Route: 048
  4. ACETAMINOPHEN [Suspect]
     Active Substance: ACETAMINOPHEN
  5. IBUPROFEN [Suspect]
     Active Substance: IBUPROFEN
     Indication: Back pain
     Dosage: 400 MILLIGRAM, QD
     Dates: start: 20250425, end: 20250510
  6. IBUPROFEN [Suspect]
     Active Substance: IBUPROFEN
     Dosage: 400 MILLIGRAM, QD
     Route: 048
     Dates: start: 20250425, end: 20250510
  7. IBUPROFEN [Suspect]
     Active Substance: IBUPROFEN
     Dosage: 400 MILLIGRAM, QD
     Route: 048
     Dates: start: 20250425, end: 20250510
  8. IBUPROFEN [Suspect]
     Active Substance: IBUPROFEN
     Dosage: 400 MILLIGRAM, QD
     Dates: start: 20250425, end: 20250510
  9. CODEINE [Suspect]
     Active Substance: CODEINE
     Indication: Back pain
  10. CODEINE [Suspect]
     Active Substance: CODEINE
     Route: 048
  11. CODEINE [Suspect]
     Active Substance: CODEINE
     Route: 048
  12. CODEINE [Suspect]
     Active Substance: CODEINE

REACTIONS (4)
  - Acute kidney injury [Fatal]
  - Anaemia [Fatal]
  - Pneumonia pneumococcal [Fatal]
  - Melaena [Fatal]

NARRATIVE: CASE EVENT DATE: 20250513
